FAERS Safety Report 5008064-1 (Version None)
Quarter: 2006Q2

REPORT INFORMATION
  Report Type: 
  Country: None (occurrence: None)
  Receive Date: 20060404
  Receipt Date: 20050711
  Transmission Date: 20061013
  Serious: Yes (Other)
  Sender: FDA-Public Use
  Company Number: 2005088239

PATIENT
  Age: 20 Year
  Sex: Male

DRUGS (3)
  1. GEODON [Suspect]
     Indication: PSYCHOTIC DISORDER
     Dosage: 120 MG (60 MG, 2 IN 1 D), ORAL
     Route: 048
     Dates: start: 20050513, end: 20050515
  2. LUVOX [Concomitant]
  3. KLONOPIN [Concomitant]

REACTIONS (2)
  - DYSTONIA [None]
  - MOVEMENT DISORDER [None]
